FAERS Safety Report 5227890-7 (Version None)
Quarter: 2007Q1

REPORT INFORMATION
  Report Type: 
  Country: None (occurrence: None)
  Receive Date: 20070202
  Receipt Date: 20070126
  Transmission Date: 20070707
  Serious: Yes (Other)
  Sender: FDA-Public Use
  Company Number: JP-PFIZER INC-2006149718

PATIENT
  Sex: Male

DRUGS (4)
  1. LIPITOR [Suspect]
     Indication: HYPERLIPIDAEMIA
     Route: 048
     Dates: start: 20060705, end: 20061130
  2. LIPITOR [Suspect]
     Indication: HYPERCHOLESTEROLAEMIA
  3. EUGLUCON [Concomitant]
     Route: 048
  4. NORVASC [Concomitant]
     Route: 048
     Dates: start: 20010530

REACTIONS (2)
  - BLOOD CREATINE PHOSPHOKINASE INCREASED [None]
  - MYOGLOBIN URINE PRESENT [None]
